FAERS Safety Report 19194778 (Version 1)
Quarter: 2021Q2

REPORT INFORMATION
  Report Type: Spontaneous
  Country: US (occurrence: US)
  Receive Date: 20210428
  Receipt Date: 20210428
  Transmission Date: 20210717
  Serious: Yes (Life-Threatening, Hospitalization)
  Sender: FDA-Public Use
  Company Number: None

PATIENT
  Age: 62 Year
  Sex: Female
  Weight: 56.25 kg

DRUGS (2)
  1. ESTRADIOL?VAGINAL CREAM, USP [Suspect]
     Active Substance: ESTRADIOL
     Indication: VULVOVAGINAL DRYNESS
     Dosage: TAKEN: INJECTION ? 3 ? WK
     Route: 067
     Dates: start: 20190910, end: 20200310
  2. LETROZOLE. [Concomitant]
     Active Substance: LETROZOLE

REACTIONS (1)
  - Breast cancer [None]

NARRATIVE: CASE EVENT DATE: 20201003
